FAERS Safety Report 5219955-0 (Version None)
Quarter: 2007Q1

REPORT INFORMATION
  Report Type: 
  Country: None (occurrence: None)
  Receive Date: 20070124
  Receipt Date: 20070124
  Transmission Date: 20070707
  Serious: Yes (Other)
  Sender: FDA-Public Use
  Company Number: None

PATIENT
  Age: 81 Year
  Sex: Male
  Weight: 97.1 kg

DRUGS (7)
  1. HYDROCHLOROTHIAZIDE [Suspect]
  2. TIMOLOL MALEATE [Concomitant]
  3. TRAVOPROST [Concomitant]
  4. CLOTRIMAZOLE [Concomitant]
  5. LISINOPRIL [Concomitant]
  6. TERAZOSIN HCL [Concomitant]
  7. SIMVASTATIN [Concomitant]

REACTIONS (1)
  - RASH [None]
